FAERS Safety Report 7419369-9 (Version None)
Quarter: 2011Q2

REPORT INFORMATION
  Report Type: 
  Country: None (occurrence: None)
  Receive Date: 20110415
  Receipt Date: 20110412
  Transmission Date: 20111010
  Serious: Yes (Death)
  Sender: FDA-Public Use
  Company Number: US-GENENTECH-316637

PATIENT
  Age: 29 Year
  Sex: Female

DRUGS (1)
  1. CATHFLO ACTIVASE [Suspect]
     Indication: DEVICE OCCLUSION
     Dosage: 2 MG, UNK

REACTIONS (3)
  - DRUG INEFFECTIVE [None]
  - DEATH [None]
  - DRUG EXPOSURE DURING PREGNANCY [None]
